FAERS Safety Report 24077223 (Version 1)
Quarter: 2024Q3

REPORT INFORMATION
  Report Type: Spontaneous
  Country: FR (occurrence: FR)
  Receive Date: 20240711
  Receipt Date: 20240711
  Transmission Date: 20241017
  Serious: No
  Sender: PIERRE FABRE MEDICAMENT
  Company Number: None

PATIENT
  Age: 0 Year
  Sex: Female
  Weight: 7.7 kg

DRUGS (4)
  1. PROPRANOLOL HYDROCHLORIDE [Suspect]
     Active Substance: PROPRANOLOL HYDROCHLORIDE
     Indication: Infantile haemangioma
     Dosage: 0.5 MG/KG/JDAY
     Route: 048
     Dates: start: 20221201, end: 20221208
  2. PROPRANOLOL HYDROCHLORIDE [Suspect]
     Active Substance: PROPRANOLOL HYDROCHLORIDE
     Dosage: 1 MG/KG/DAY
     Route: 048
     Dates: start: 20221208, end: 20221222
  3. PROPRANOLOL HYDROCHLORIDE [Suspect]
     Active Substance: PROPRANOLOL HYDROCHLORIDE
     Dosage: 1,5 MG/KG/DAY
     Route: 048
     Dates: start: 20221222, end: 20230208
  4. PROPRANOLOL HYDROCHLORIDE [Suspect]
     Active Substance: PROPRANOLOL HYDROCHLORIDE
     Dosage: 3 MG/KG/DAY
     Route: 048
     Dates: start: 20230208, end: 20230517

REACTIONS (4)
  - Sleep terror [Recovered/Resolved]
  - Failure to thrive [Not Recovered/Not Resolved]
  - Drug titration error [Unknown]
  - Off label use [Unknown]

NARRATIVE: CASE EVENT DATE: 20221201
